FAERS Safety Report 16128301 (Version 1)
Quarter: 2019Q1

REPORT INFORMATION
  Report Type: Spontaneous
  Country: US (occurrence: US)
  Receive Date: 20190328
  Receipt Date: 20190328
  Transmission Date: 20190418
  Serious: Yes (Hospitalization)
  Sender: FDA-Public Use
  Company Number: US-ORPHAN EUROPE-2064819

PATIENT
  Age: 9 Year
  Sex: Male
  Weight: 36.2 kg

DRUGS (2)
  1. CARBAGLU [Suspect]
     Active Substance: CARGLUMIC ACID
     Indication: CARNITINE-ACYLCARNITINE TRANSLOCASE DEFICIENCY
     Dates: start: 20151119
  2. BUPHENYL [Concomitant]
     Active Substance: SODIUM PHENYLBUTYRATE

REACTIONS (4)
  - Off label use [Unknown]
  - Pancreatitis [Unknown]
  - Ammonia increased [Unknown]
  - Diarrhoea [Unknown]

NARRATIVE: CASE EVENT DATE: 20180820
